FAERS Safety Report 8588470-9 (Version None)
Quarter: 2012Q3

REPORT INFORMATION
  Report Type: 
  Country: None (occurrence: None)
  Receive Date: 20120813
  Receipt Date: 20120806
  Transmission Date: 20120928
  Serious: Yes (Other)
  Sender: FDA-Public Use
  Company Number: JP-SANOFI-AVENTIS-2012SA056170

PATIENT
  Age: 93 Year

DRUGS (2)
  1. LASIX [Suspect]
     Route: 048
  2. COENZYME Q10 [Concomitant]

REACTIONS (1)
  - HAEMORRHAGE SUBCUTANEOUS [None]
